FAERS Safety Report 5771521-4 (Version None)
Quarter: 2008Q2

REPORT INFORMATION
  Report Type: 
  Country: None (occurrence: None)
  Receive Date: 20080611
  Receipt Date: 20080529
  Transmission Date: 20081010
  Serious: Yes (Other)
  Sender: FDA-Public Use
  Company Number: 220003M08FRA

PATIENT
  Age: 9 Year
  Sex: Male
  Weight: 23 kg

DRUGS (1)
  1. SAIZEN [Suspect]
     Indication: GROWTH HORMONE DEFICIENCY
     Dosage: 0.73 MG, 1 IN 1 DAYS
     Dates: start: 20070101, end: 20080301

REACTIONS (2)
  - BRAIN NEOPLASM [None]
  - INSULIN-LIKE GROWTH FACTOR DECREASED [None]
